FAERS Safety Report 4374794-8 (Version None)
Quarter: 2004Q2

REPORT INFORMATION
  Report Type: 
  Country: None (occurrence: None)
  Receive Date: 20040604
  Receipt Date: 20040526
  Transmission Date: 20050107
  Serious: Yes (Hospitalization, Disabling)
  Sender: FDA-Public Use
  Company Number: HQ6331723JAN2003

PATIENT
  Age: 53 Year
  Sex: Female

DRUGS (1)
  1. DIMETAPP [Suspect]
     Dosage: ORAL
     Route: 048

REACTIONS (14)
  - AMNESIA [None]
  - ATELECTASIS [None]
  - BEDRIDDEN [None]
  - BLOOD CALCIUM DECREASED [None]
  - BLOOD POTASSIUM DECREASED [None]
  - CAROTID ARTERY ANEURYSM [None]
  - CONVULSION [None]
  - INJURY [None]
  - INTRACRANIAL PRESSURE INCREASED [None]
  - POST PROCEDURAL COMPLICATION [None]
  - RUPTURED CEREBRAL ANEURYSM [None]
  - SPEECH DISORDER [None]
  - SUBARACHNOID HAEMORRHAGE [None]
  - WHITE BLOOD CELL COUNT INCREASED [None]
